FAERS Safety Report 9617783 (Version 1)
Quarter: 2013Q4

REPORT INFORMATION
  Report Type: Report from Study
  Country: US (occurrence: US)
  Receive Date: 20131011
  Receipt Date: 20131011
  Transmission Date: 20140711
  Serious: Yes (Other)
  Sender: FDA-Public Use
  Company Number: US-ABBVIE-13P-163-1154127-00

PATIENT
  Sex: Female
  Weight: 80.81 kg

DRUGS (4)
  1. HUMIRA [Suspect]
     Indication: PSORIATIC ARTHROPATHY
     Dates: start: 2007
  2. HUMIRA [Suspect]
  3. METHOTREXATE [Concomitant]
     Indication: PSORIATIC ARTHROPATHY
  4. ALLEGRA [Concomitant]
     Indication: SEASONAL ALLERGY

REACTIONS (4)
  - Ovarian neoplasm [Recovered/Resolved]
  - Abdominal pain [Recovered/Resolved]
  - Sinusitis [Recovered/Resolved]
  - Irritable bowel syndrome [Unknown]
